FAERS Safety Report 18097561 (Version 1)
Quarter: 2020Q3

REPORT INFORMATION
  Report Type: Spontaneous
  Country: US (occurrence: US)
  Receive Date: 20200730
  Receipt Date: 20200730
  Transmission Date: 20201103
  Serious: No
  Sender: FDA-Public Use
  Company Number: US-VIFOR (INTERNATIONAL) INC.-VIT-2020-07800

PATIENT
  Age: 64 Year
  Sex: Male

DRUGS (18)
  1. DILTIAZEM. [Concomitant]
     Active Substance: DILTIAZEM
  2. BENZONATATE. [Concomitant]
     Active Substance: BENZONATATE
  3. OMEPRAZOLE. [Concomitant]
     Active Substance: OMEPRAZOLE
  4. VALSART [Concomitant]
     Active Substance: VALSARTAN
  5. CLOBETASOL [Concomitant]
     Active Substance: CLOBETASOL
  6. PULMOZYME [Concomitant]
     Active Substance: DORNASE ALFA
  7. LASIX [Concomitant]
     Active Substance: FUROSEMIDE
  8. SYMBICORT [Concomitant]
     Active Substance: BUDESONIDE\FORMOTEROL FUMARATE DIHYDRATE
  9. AMLODIPINE [Concomitant]
     Active Substance: AMLODIPINE BESYLATE
  10. SODIUM BICARBONATE. [Concomitant]
     Active Substance: SODIUM BICARBONATE
  11. TUDORZA [Concomitant]
     Active Substance: ACLIDINIUM BROMIDE
  12. VELTASSA [Suspect]
     Active Substance: PATIROMER
     Indication: PRODUCT USED FOR UNKNOWN INDICATION
     Route: 048
     Dates: start: 20180317
  13. OLMESA [Concomitant]
  14. VENTOLIN [Concomitant]
     Active Substance: ALBUTEROL SULFATE
  15. VITAMIN D3 [Concomitant]
     Active Substance: CHOLECALCIFEROL
  16. NIACIN. [Concomitant]
     Active Substance: NIACIN
  17. CHLORTHALID [Concomitant]
     Active Substance: CHLORTHALIDONE
  18. OMEGA?3 ACIDS [Concomitant]
     Active Substance: OMEGA-3 FATTY ACIDS

REACTIONS (1)
  - Rash [Not Recovered/Not Resolved]
